FAERS Safety Report 23210504 (Version 1)
Quarter: 2023Q4

REPORT INFORMATION
  Report Type: Other
  Country: ZA (occurrence: None)
  Receive Date: 20231121
  Receipt Date: 20231121
  Transmission Date: 20240109
  Serious: Yes (Other)
  Sender: FDA-Public Use
  Company Number: ZA-ROCHE-3056625

PATIENT
  Sex: Male

DRUGS (7)
  1. OCREVUS [Suspect]
     Active Substance: OCRELIZUMAB
     Indication: Relapsing-remitting multiple sclerosis
     Dosage: THEN 600 MG IN EVERY 6 MONTHS
     Route: 041
     Dates: start: 20220217
  2. BACLOFEN [Concomitant]
     Active Substance: BACLOFEN
  3. LYRICA [Concomitant]
     Active Substance: PREGABALIN
  4. LEVOTHYROXINE [Concomitant]
     Active Substance: LEVOTHYROXINE
  5. ASCORBIC ACID\FERRIC PYROPHOSPHATE [Concomitant]
     Active Substance: ASCORBIC ACID\FERRIC PYROPHOSPHATE
  6. FOLIC ACID [Concomitant]
     Active Substance: FOLIC ACID
  7. ANVIRO [Concomitant]

REACTIONS (9)
  - Asthenia [Unknown]
  - Gait inability [Unknown]
  - Pruritus [Unknown]
  - Hypoaesthesia [Unknown]
  - Peripheral coldness [Unknown]
  - Peripheral coldness [Unknown]
  - Multiple sclerosis [Unknown]
  - Herpes simplex [Unknown]
  - Dyslipidaemia [Unknown]
